FAERS Safety Report 10446916 (Version 1)
Quarter: 2014Q3

REPORT INFORMATION
  Report Type: Spontaneous
  Country: FR (occurrence: FR)
  Receive Date: 20140911
  Receipt Date: 20140911
  Transmission Date: 20150326
  Serious: Yes (Hospitalization)
  Sender: FDA-Public Use
  Company Number: FR-SA-2014SA121486

PATIENT
  Age: 62 Year
  Sex: Female

DRUGS (22)
  1. LASILIX [Suspect]
     Active Substance: FUROSEMIDE
     Indication: OEDEMA PERIPHERAL
     Dosage: STRENGTH- 40 MG
     Route: 048
     Dates: start: 20140417, end: 20140418
  2. COUMADINE [Suspect]
     Active Substance: WARFARIN SODIUM
     Indication: THROMBOSIS PROPHYLAXIS
     Route: 048
     Dates: start: 20140416
  3. FEMARA [Concomitant]
     Active Substance: LETROZOLE
  4. LASILIX [Suspect]
     Active Substance: FUROSEMIDE
     Indication: OEDEMA PERIPHERAL
     Dosage: STRENGTH- 40 MG
     Route: 048
     Dates: start: 20140411, end: 20140412
  5. LASILIX [Suspect]
     Active Substance: FUROSEMIDE
     Indication: OEDEMA PERIPHERAL
     Dosage: STRENGTH- 40 MG
     Route: 048
     Dates: start: 20140423
  6. ZELITREX [Suspect]
     Active Substance: VALACYCLOVIR HYDROCHLORIDE
     Indication: ANTIVIRAL PROPHYLAXIS
     Route: 048
     Dates: start: 20140417, end: 20140517
  7. MODAMIDE [Suspect]
     Active Substance: AMILORIDE HYDROCHLORIDE
     Indication: OEDEMA PERIPHERAL
     Dosage: STRENGTH- 5 MG
     Route: 048
     Dates: start: 20140412, end: 20140418
  8. FUROSEMIDE. [Suspect]
     Active Substance: FUROSEMIDE
     Indication: OEDEMA PERIPHERAL
     Route: 065
  9. EZETROL [Concomitant]
     Active Substance: EZETIMIBE
  10. ORACILLINE [Suspect]
     Active Substance: PENICILLIN V
     Indication: PROPHYLAXIS
     Route: 048
     Dates: start: 20140416, end: 20140517
  11. CALCIDIA [Concomitant]
     Active Substance: CALCIUM POLYCARBOPHIL
  12. LETROZOLE. [Concomitant]
     Active Substance: LETROZOLE
  13. ALKERAN [Suspect]
     Active Substance: MELPHALAN
     Indication: RENAL AMYLOIDOSIS
     Route: 048
     Dates: start: 20140417, end: 20140420
  14. DIFFU K [Concomitant]
     Active Substance: POTASSIUM CHLORIDE
  15. L-THYROXIN [Concomitant]
     Active Substance: LEVOTHYROXINE SODIUM
  16. LASILIX [Suspect]
     Active Substance: FUROSEMIDE
     Indication: OEDEMA PERIPHERAL
     Route: 042
     Dates: start: 20140410, end: 20140411
  17. MODAMIDE [Suspect]
     Active Substance: AMILORIDE HYDROCHLORIDE
     Indication: OEDEMA PERIPHERAL
     Dosage: STRENGTH- 5 MG
     Route: 048
     Dates: start: 20140424
  18. LASILIX [Suspect]
     Active Substance: FUROSEMIDE
     Indication: OEDEMA PERIPHERAL
     Dosage: STRENGHTH- 500 MG
     Route: 048
     Dates: start: 20140412, end: 20140414
  19. INEXIUM [Concomitant]
     Active Substance: ESOMEPRAZOLE
  20. LASILIX [Suspect]
     Active Substance: FUROSEMIDE
     Indication: OEDEMA PERIPHERAL
     Dosage: STRENGTH- 500 MG
     Route: 048
     Dates: start: 20140415, end: 20140417
  21. DEXAMETHASONE. [Suspect]
     Active Substance: DEXAMETHASONE
     Indication: RENAL AMYLOIDOSIS
     Route: 048
     Dates: start: 20140417, end: 20140420
  22. BACTRIM [Suspect]
     Active Substance: SULFAMETHOXAZOLE\TRIMETHOPRIM
     Indication: OPPORTUNISTIC INFECTION PROPHYLAXIS
     Route: 048
     Dates: start: 20140424, end: 20140517

REACTIONS (1)
  - Renal failure acute [Not Recovered/Not Resolved]

NARRATIVE: CASE EVENT DATE: 20140418
